FAERS Safety Report 9704425 (Version 4)
Quarter: 2014Q1

REPORT INFORMATION
  Report Type: Report from Study
  Country: JP (occurrence: JP)
  Receive Date: 20131122
  Receipt Date: 20140101
  Transmission Date: 20141002
  Serious: Yes (Hospitalization)
  Sender: FDA-Public Use
  Company Number: JP-ASTRAZENECA-2013SE85114

PATIENT
  Age: 30092 Day
  Sex: Male

DRUGS (13)
  1. AZD6140 [Suspect]
     Indication: CORONARY ARTERY DISEASE
     Route: 048
     Dates: start: 20120510, end: 20131115
  2. BAYASPIRIN [Suspect]
     Route: 048
     Dates: end: 20131115
  3. FAMOTIDINE [Concomitant]
     Indication: GASTRITIS PROPHYLAXIS
     Route: 048
     Dates: start: 20131107, end: 20131114
  4. BEZAFIBRATE [Concomitant]
     Indication: DYSLIPIDAEMIA
     Route: 048
     Dates: start: 20120510
  5. BENIDIPINE [Concomitant]
     Indication: HYPERTENSION
     Route: 048
     Dates: start: 20120510
  6. BLOPRESS [Concomitant]
     Indication: HYPERTENSION
     Route: 048
  7. AMLODIPINE [Concomitant]
     Indication: HYPERTENSION
     Route: 048
     Dates: start: 20120510, end: 20131116
  8. TAMSULOSIN [Concomitant]
     Indication: DYSURIA
     Route: 048
     Dates: start: 20120511, end: 20120705
  9. TAMSULOSIN [Concomitant]
     Indication: DYSURIA
     Route: 048
     Dates: start: 20120831
  10. SELPAS [Concomitant]
     Indication: GASTRITIS PROPHYLAXIS
     Route: 048
     Dates: start: 20120510
  11. TEPRENONE [Concomitant]
     Indication: GASTRITIS PROPHYLAXIS
     Route: 048
     Dates: start: 20121227
  12. PHELLOBERIN [Concomitant]
     Indication: FUNCTIONAL GASTROINTESTINAL DISORDER
     Route: 048
  13. GAMOFA [Concomitant]
     Indication: GASTRITIS PROPHYLAXIS
     Route: 048
     Dates: start: 20120510, end: 20131106

REACTIONS (1)
  - Gastric cancer [Recovered/Resolved]
